FAERS Safety Report 16289857 (Version 1)
Quarter: 2019Q2

REPORT INFORMATION
  Report Type: Spontaneous
  Country: US (occurrence: US)
  Receive Date: 20190508
  Receipt Date: 20190508
  Transmission Date: 20190711
  Serious: Yes (Disabling, Congenital Anomaly)
  Sender: FDA-Public Use
  Company Number: None

PATIENT
  Age: 36 Year
  Sex: Female
  Weight: 57.15 kg

DRUGS (4)
  1. KEPPRA [Concomitant]
     Active Substance: LEVETIRACETAM
  2. TOPAMAX [Concomitant]
     Active Substance: TOPIRAMATE
  3. RELPAX [Concomitant]
     Active Substance: ELETRIPTAN HYDROBROMIDE
  4. LUPRON DEPOT [Suspect]
     Active Substance: LEUPROLIDE ACETATE
     Indication: ENDOMETRIOSIS
     Dosage: ?          OTHER FREQUENCY:1X  A MONTH FOR 6;?
     Route: 030

REACTIONS (9)
  - Thyroid neoplasm [None]
  - Pregnancy [None]
  - Arthralgia [None]
  - Epilepsy [None]
  - Foot deformity [None]
  - Migraine [None]
  - Strabismus [None]
  - Live birth [None]
  - Exposure during pregnancy [None]
